FAERS Safety Report 7210836-X (Version None)
Quarter: 2011Q1

REPORT INFORMATION
  Report Type: 
  Country: None (occurrence: None)
  Receive Date: 20110105
  Receipt Date: 20101229
  Transmission Date: 20110831
  Serious: Yes (Hospitalization)
  Sender: FDA-Public Use
  Company Number: BR-ABBOTT-10P-020-0694443-00

PATIENT
  Sex: Female
  Weight: 74 kg

DRUGS (3)
  1. HUMIRA [Suspect]
     Indication: RHEUMATOID ARTHRITIS
     Route: 058
     Dates: start: 20080101
  2. LEFLUNOMIDE [Concomitant]
     Indication: RHEUMATOID ARTHRITIS
     Route: 048
     Dates: start: 20080101
  3. METHOTREXATE [Concomitant]
     Indication: RHEUMATOID ARTHRITIS
     Route: 048

REACTIONS (10)
  - PAROTID GLAND ENLARGEMENT [None]
  - TONSILLITIS [None]
  - COUGH [None]
  - RASH MACULAR [None]
  - INFLUENZA [None]
  - OROPHARYNGEAL PAIN [None]
  - SKIN INFECTION [None]
  - SINUSITIS [None]
  - DYSPHONIA [None]
  - WEIGHT INCREASED [None]
